FAERS Safety Report 18587321 (Version 2)
Quarter: 2021Q1

REPORT INFORMATION
  Report Type: Report from Study
  Country: US (occurrence: US)
  Receive Date: 20201207
  Receipt Date: 20210316
  Transmission Date: 20210419
  Serious: No
  Sender: FDA-Public Use
  Company Number: US-AGIOS-2012US02313

PATIENT

DRUGS (1)
  1. TIBSOVO [Suspect]
     Active Substance: IVOSIDENIB
     Indication: ACUTE MYELOID LEUKAEMIA
     Dosage: 250 MILLIGRAM, 2 TABLETS (500 MG) DAILY
     Route: 048
     Dates: start: 20200802

REACTIONS (6)
  - Weight increased [Unknown]
  - Musculoskeletal stiffness [Unknown]
  - White blood cell count decreased [Recovered/Resolved]
  - Paraesthesia [Unknown]
  - Sensation of blood flow [Unknown]
  - Glycosylated haemoglobin decreased [Unknown]
